FAERS Safety Report 9181736 (Version 1)
Quarter: 2013Q1

REPORT INFORMATION
  Report Type: Spontaneous
  Country: US (occurrence: US)
  Receive Date: 20130322
  Receipt Date: 20130322
  Transmission Date: 20140127
  Serious: No
  Sender: FDA-Public Use
  Company Number: US-PFIZER INC-2013090898

PATIENT
  Sex: 0

DRUGS (2)
  1. LEVOXYL [Suspect]
     Dosage: 50 UG, UNK
  2. LEVOXYL [Suspect]

REACTIONS (1)
  - Alopecia [Recovered/Resolved]
